FAERS Safety Report 21259992 (Version 1)
Quarter: 2022Q3

REPORT INFORMATION
  Report Type: Spontaneous
  Country: US (occurrence: US)
  Receive Date: 20220826
  Receipt Date: 20220826
  Transmission Date: 20221027
  Serious: No
  Sender: FDA-Public Use
  Company Number: US-drreddys-SPO/USA/22/0153559

PATIENT
  Age: 25 Year
  Sex: Female

DRUGS (2)
  1. ACCUTANE [Suspect]
     Active Substance: ISOTRETINOIN
     Indication: Acne
     Dosage: RMA ISSUE DATE: 12 JULY 2022 03:54:55 PM
  2. ACCUTANE [Suspect]
     Active Substance: ISOTRETINOIN
     Dosage: RMA ISSUE DATE: 07 JUNE 2022 02:50:18 PM

REACTIONS (1)
  - Adverse drug reaction [Unknown]
